FAERS Safety Report 9494482 (Version 3)
Quarter: 2014Q1

REPORT INFORMATION
  Report Type: Spontaneous
  Country: US (occurrence: US)
  Receive Date: 20130903
  Receipt Date: 20140108
  Transmission Date: 20141002
  Serious: Yes (Other)
  Sender: FDA-Public Use
  Company Number: US-ASTELLAS-2013US009158

PATIENT
  Age: 75 Year
  Sex: Male
  Weight: 78 kg

DRUGS (10)
  1. XTANDI [Suspect]
     Indication: PROSTATE CANCER
     Dosage: 160 MG, UID/QD
     Route: 048
     Dates: start: 20130730, end: 20130819
  2. TENORMIN [Suspect]
     Indication: HYPERTENSION
     Dosage: UNK
     Route: 048
  3. ZOMETA [Concomitant]
     Indication: METASTASES TO BONE
     Dosage: Q 3 MONTHS
     Route: 065
  4. ZESTORETIC [Concomitant]
     Indication: PRODUCT USED FOR UNKNOWN INDICATION
     Dosage: UNK
     Route: 065
  5. FENTANYL [Concomitant]
     Indication: PRODUCT USED FOR UNKNOWN INDICATION
     Dosage: 25 MCG/HR, PATCH TO SKIN EVERY 3 DAYS
     Route: 062
  6. TEMAZEPAM [Concomitant]
     Indication: INSOMNIA
     Dosage: 15 MG, PRN
     Route: 048
  7. LEUPROLIDE [Concomitant]
     Indication: PRODUCT USED FOR UNKNOWN INDICATION
     Dosage: 45 MG, EVERY 26 WEEKS
     Route: 030
  8. POTASSIUM CHLORIDE [Concomitant]
     Indication: PRODUCT USED FOR UNKNOWN INDICATION
     Dosage: 20 MEQ, UID/QD
     Route: 048
  9. LIDOCAINE W/PRILOCAINE [Concomitant]
     Indication: PRODUCT USED FOR UNKNOWN INDICATION
     Dosage: 2.5-2.5 %, APPLY TO PORT 1 HOUR BEFORE ACCESS
     Route: 061
  10. OMEPRAZOLE [Concomitant]
     Indication: PRODUCT USED FOR UNKNOWN INDICATION
     Dosage: 20 MG, PRN
     Route: 048

REACTIONS (4)
  - Bradycardia [Recovered/Resolved]
  - Myocardial ischaemia [Unknown]
  - Palpitations [Recovered/Resolved]
  - Musculoskeletal chest pain [Recovered/Resolved]
